FAERS Safety Report 13490095 (Version 3)
Quarter: 2017Q2

REPORT INFORMATION
  Report Type: Report from Study
  Country: IT (occurrence: IT)
  Receive Date: 20170427
  Receipt Date: 20170508
  Transmission Date: 20170830
  Serious: Yes (Other)
  Sender: FDA-Public Use
  Company Number: IT-TEVA-761822ACC

PATIENT
  Age: 76 Year
  Sex: Female

DRUGS (6)
  1. ALGIX - 60 MG COMPRESSE RIVESTITE CON FILM [Interacting]
     Active Substance: ETORICOXIB
     Indication: BACK PAIN
     Dosage: 2 DOSAGE FORMS DAILY;
     Route: 048
     Dates: start: 20160607, end: 20160614
  2. MOBIC [Interacting]
     Active Substance: MELOXICAM
     Indication: OSTEOARTHRITIS
     Dosage: 1 DOSAGE FORMS DAILY;
     Route: 048
     Dates: start: 20160301, end: 20160614
  3. DIDROGYL [Concomitant]
     Active Substance: CALCIFEDIOL
     Indication: PRODUCT USED FOR UNKNOWN INDICATION
  4. PLAQUENIL [Concomitant]
     Active Substance: HYDROXYCHLOROQUINE SULFATE
     Indication: PRODUCT USED FOR UNKNOWN INDICATION
     Dosage: 200 MG
     Route: 048
  5. PREDNISONE. [Suspect]
     Active Substance: PREDNISONE
     Indication: OSTEOARTHRITIS
     Dosage: 10 MILLIGRAM DAILY;
     Route: 048
     Dates: start: 20160301, end: 20160614
  6. LANSOX [Concomitant]
     Active Substance: LANSOPRAZOLE
     Indication: PRODUCT USED FOR UNKNOWN INDICATION
     Route: 048

REACTIONS (3)
  - Drug interaction [Recovering/Resolving]
  - Rectal haemorrhage [Recovering/Resolving]
  - Abdominal pain [Recovering/Resolving]

NARRATIVE: CASE EVENT DATE: 20160611
